FAERS Safety Report 21141943 (Version 1)
Quarter: 2022Q3

REPORT INFORMATION
  Report Type: Spontaneous
  Country: US (occurrence: None)
  Receive Date: 20220727
  Receipt Date: 20220727
  Transmission Date: 20221027
  Serious: Yes (Hospitalization, Disabling)
  Sender: FDA-Public Use
  Company Number: None

PATIENT
  Sex: 0

DRUGS (1)
  1. ARISTADA [Suspect]
     Active Substance: ARIPIPRAZOLE LAUROXIL
     Route: 030

REACTIONS (4)
  - Neuroleptic malignant syndrome [None]
  - Compartment syndrome [None]
  - Rhabdomyolysis [None]
  - Necrotising fasciitis [None]

NARRATIVE: CASE EVENT DATE: 20220623
